FAERS Safety Report 5907980-3 (Version None)
Quarter: 2008Q4

REPORT INFORMATION
  Report Type: 
  Country: None (occurrence: None)
  Receive Date: 20081003
  Receipt Date: 20080924
  Transmission Date: 20090506
  Serious: Yes (Hospitalization)
  Sender: FDA-Public Use
  Company Number: US-PFIZER INC-2008078817

PATIENT
  Sex: Female

DRUGS (27)
  1. DETROL [Suspect]
     Indication: BLADDER DISORDER
     Route: 048
     Dates: end: 20080909
  2. CELECOXIB [Suspect]
     Indication: RHEUMATOID ARTHRITIS
     Route: 048
     Dates: start: 20080807
  3. NEXIUM [Concomitant]
     Indication: GASTROOESOPHAGEAL REFLUX DISEASE
     Route: 048
  4. ISOSORBIDE [Concomitant]
     Route: 048
  5. LISINOPRIL [Concomitant]
     Indication: HYPERTENSION
     Route: 048
     Dates: end: 20080909
  6. HYDRALAZINE HCL [Concomitant]
     Indication: HYPERTENSION
     Route: 048
  7. DICLOFENAC [Concomitant]
     Indication: RHEUMATOID ARTHRITIS
     Route: 048
     Dates: end: 20080909
  8. BUPROPION HCL [Concomitant]
     Indication: DEPRESSION
     Route: 048
     Dates: end: 20080909
  9. POTASSIUM CHLORIDE [Concomitant]
     Indication: MINERAL SUPPLEMENTATION
     Route: 048
     Dates: end: 20080909
  10. LASIX [Concomitant]
     Indication: DIURETIC THERAPY
     Route: 048
  11. METFORMIN HCL [Concomitant]
     Indication: DIABETES MELLITUS
     Route: 048
  12. AMLODIPINE [Concomitant]
     Indication: HYPERTENSION
     Route: 048
  13. GLIPIZIDE [Concomitant]
     Indication: DIABETES MELLITUS
     Route: 048
  14. CITALOPRAM HYDROBROMIDE [Concomitant]
     Indication: DEPRESSION
     Route: 048
  15. TOPROL-XL [Concomitant]
     Indication: HYPERTENSION
     Route: 048
  16. SIMVASTATIN [Concomitant]
     Indication: HYPERCHOLESTEROLAEMIA
     Route: 050
     Dates: end: 20080909
  17. LORAZEPAM [Concomitant]
     Indication: ANXIETY
     Route: 048
  18. ARTIFICIAL TEARS [Concomitant]
     Indication: DRY EYE
     Route: 047
  19. ALBUTEROL [Concomitant]
     Indication: DYSPNOEA
     Route: 055
  20. OXYMETAZOLINE HCL [Concomitant]
     Indication: NASAL CONGESTION
     Route: 045
  21. TUMS [Concomitant]
     Indication: DYSPEPSIA
     Route: 048
  22. FLONASE [Concomitant]
     Indication: HYPERSENSITIVITY
     Route: 045
  23. DARVOCET-N 100 [Concomitant]
     Indication: PAIN
     Route: 048
  24. TYLENOL (CAPLET) [Concomitant]
     Indication: PAIN
     Route: 048
  25. REQUIP [Concomitant]
     Indication: RESTLESS LEGS SYNDROME
     Route: 048
  26. ACETYLSALICYLIC ACID SRT [Concomitant]
     Indication: ROUTINE HEALTH MAINTENANCE
     Route: 048
  27. AMBIEN [Concomitant]
     Indication: INSOMNIA
     Route: 048

REACTIONS (1)
  - ENCEPHALOPATHY [None]
